FAERS Safety Report 8325505-2 (Version None)
Quarter: 2012Q2

REPORT INFORMATION
  Report Type: 
  Country: None (occurrence: None)
  Receive Date: 20120427
  Receipt Date: 20120425
  Transmission Date: 20120825
  Serious: Yes (Other)
  Sender: FDA-Public Use
  Company Number: ADR-2011-11603

PATIENT
  Sex: Male

DRUGS (2)
  1. LIORESAL [Suspect]
     Indication: PAIN
  2. LIORESAL [Suspect]
     Indication: BACK PAIN

REACTIONS (2)
  - STAPHYLOCOCCAL INFECTION [None]
  - IMPLANT SITE INFECTION [None]
